FAERS Safety Report 8585347-X (Version None)
Quarter: 2012Q2

REPORT INFORMATION
  Report Type: 
  Country: None (occurrence: None)
  Receive Date: 20120423
  Receipt Date: 20100414
  Transmission Date: 20120825
  Serious: Yes (Hospitalization)
  Sender: FDA-Public Use
  Company Number: PHEH2010US01450

PATIENT
  Age: 52 Year
  Sex: Male

DRUGS (1)
  1. EXJADE [Suspect]
     Dosage: 750 MG, QD, ORAL
     Route: 048

REACTIONS (2)
  - LIVER TRANSPLANT [None]
  - HEPATIC FAILURE [None]
